FAERS Safety Report 10302248 (Version 2)
Quarter: 2014Q3

REPORT INFORMATION
  Report Type: Spontaneous
  Country: US (occurrence: None)
  Receive Date: 20140709
  Receipt Date: 20140717
  Transmission Date: 20150326
  Serious: Yes (Hospitalization)
  Sender: FDA-Public Use
  Company Number: 2014IP003

PATIENT
  Sex: Female

DRUGS (2)
  1. MOTELUKAST (MONTELUKAST) [Concomitant]
  2. DEXMETHYLPHENIDATE HYDROCHLORIDE. [Suspect]
     Active Substance: DEXMETHYLPHENIDATE HYDROCHLORIDE
     Indication: ATTENTION DEFICIT/HYPERACTIVITY DISORDER

REACTIONS (8)
  - Attention deficit/hyperactivity disorder [None]
  - Condition aggravated [None]
  - Product quality issue [None]
  - Headache [None]
  - Product substitution issue [None]
  - Fatigue [None]
  - Somnolence [None]
  - Asthenia [None]
